FAERS Safety Report 22400223 (Version 1)
Quarter: 2023Q2

REPORT INFORMATION
  Report Type: Spontaneous
  Country: US (occurrence: None)
  Receive Date: 20230601
  Receipt Date: 20230601
  Transmission Date: 20230721
  Serious: Yes (Hospitalization)
  Sender: FDA-Public Use
  Company Number: None

PATIENT
  Age: 30 Year
  Sex: Male
  Weight: 132 kg

DRUGS (1)
  1. IOPAMIDOL [Suspect]
     Active Substance: IOPAMIDOL
     Indication: Scan with contrast
     Dates: start: 20230403, end: 20230403

REACTIONS (5)
  - Malaise [None]
  - Drooling [None]
  - Hyperhidrosis [None]
  - Disorientation [None]
  - Contrast media reaction [None]

NARRATIVE: CASE EVENT DATE: 20230403
